FAERS Safety Report 5386399-0 (Version None)
Quarter: 2007Q3

REPORT INFORMATION
  Report Type: 
  Country: None (occurrence: None)
  Receive Date: 20070710
  Receipt Date: 20070710
  Transmission Date: 20080115
  Serious: No
  Sender: FDA-Public Use
  Company Number: None

PATIENT
  Sex: Female
  Weight: 52.3 kg

DRUGS (3)
  1. CARBOPLATIN [Suspect]
     Dosage: 647 MG
  2. TAXOTERE [Suspect]
     Dosage: 110 MG
  3. TAXOL [Suspect]
     Dosage: 87.6 MG

REACTIONS (2)
  - NEUTROPHIL COUNT DECREASED [None]
  - WHITE BLOOD CELL COUNT DECREASED [None]
